FAERS Safety Report 16569964 (Version 1)
Quarter: 2019Q3

REPORT INFORMATION
  Report Type: Spontaneous
  Country: DE (occurrence: DE)
  Receive Date: 20190715
  Receipt Date: 20190715
  Transmission Date: 20191004
  Serious: Yes (Hospitalization)
  Sender: FDA-Public Use
  Company Number: DE-TEVA-2019-DE-1076652

PATIENT
  Age: 58 Year
  Sex: Male
  Weight: 70 kg

DRUGS (11)
  1. CARVEDILOL. [Concomitant]
     Active Substance: CARVEDILOL
     Dosage: 6.25 MG, 1-0-1-0, TABLET
     Route: 048
  2. NYSTADERM MUNDGEL [Concomitant]
     Dosage: 50 G, EVERY 2-3 H, MOUTHGEL
     Route: 048
  3. MYCOPHENOLSAURE [Suspect]
     Active Substance: MYCOPHENOLIC ACID
     Dosage: 500 MG, 2-0-2-0, TABLET
     Route: 048
  4. URSOFALK 500MG [Concomitant]
     Dosage: 500 MG, 1-0-1-0, TABLET
     Route: 048
  5. FUROSEMID [Concomitant]
     Active Substance: FUROSEMIDE
     Dosage: 40 MG, IF NECESSARY 1-0-0-0, TABLETS
     Route: 048
  6. PREDNISOLON [Suspect]
     Active Substance: PREDNISOLONE
     Dosage: 15 MG, 1-0-0-0, TABLET
     Route: 048
  7. SPIRONOLACTON [Concomitant]
     Active Substance: SPIRONOLACTONE
     Dosage: 100 MG, IF NECESSARY 1-0-0-0, TABLETS
     Route: 048
  8. CALCIUMCARBONAT/COLECALCIFEROL [Concomitant]
     Dosage: 1000|800 MG/IE, 0-1-0-0, EFFERVESCENT TABLETS
     Route: 048
  9. PANTOPRAZOL [Concomitant]
     Active Substance: PANTOPRAZOLE SODIUM
     Dosage: 40 MG, 1-0-0-0, TABLET
     Route: 048
  10. PRADAXA [Concomitant]
     Active Substance: DABIGATRAN ETEXILATE MESYLATE
     Dosage: 110 MG, 1-0-1-0, TABLET
     Route: 048
  11. TILIDIN/NALOXON [Concomitant]
     Active Substance: NALOXONE HYDROCHLORIDE\TILIDINE HYDROCHLORIDE
     Dosage: 50|4 MG, IF NECESSARY, TABLETS
     Route: 048

REACTIONS (4)
  - Hypophagia [Unknown]
  - Dysphagia [Unknown]
  - General physical health deterioration [Unknown]
  - Oesophageal candidiasis [Unknown]
